FAERS Safety Report 4692469-2 (Version None)
Quarter: 2005Q2

REPORT INFORMATION
  Report Type: 
  Country: None (occurrence: None)
  Receive Date: 20050613
  Receipt Date: 20050510
  Transmission Date: 20051028
  Serious: Yes (Other)
  Sender: FDA-Public Use
  Company Number: 2005-01046

PATIENT
  Sex: 0

DRUGS (1)
  1. VELCADE [Suspect]
     Dosage: UNK
     Route: 065
     Dates: start: 20050101, end: 20050501

REACTIONS (2)
  - BLOOD CREATININE INCREASED [None]
  - RENAL FAILURE [None]
